FAERS Safety Report 15235073 (Version 2)
Quarter: 2018Q4

REPORT INFORMATION
  Report Type: Spontaneous
  Country: IT (occurrence: IT)
  Receive Date: 20180803
  Receipt Date: 20180820
  Transmission Date: 20190204
  Serious: Yes (Life-Threatening, Hospitalization, Other)
  Sender: FDA-Public Use
  Company Number: IT-LUPIN PHARMACEUTICALS INC.-2018-05435

PATIENT
  Age: 78 Year
  Sex: Female

DRUGS (1)
  1. TELMISARTAN AND HYDROCHLOROTHIAZIDE TABLETS USP 40 MG/12.5 MG [Suspect]
     Active Substance: HYDROCHLOROTHIAZIDE\TELMISARTAN
     Indication: HYPERTENSION
     Dosage: UNK
     Route: 048

REACTIONS (12)
  - Dyspnoea [Recovered/Resolved]
  - Disseminated intravascular coagulation [Recovered/Resolved]
  - Cyanosis [Recovered/Resolved]
  - Rales [Recovered/Resolved]
  - Accidental exposure to product [Unknown]
  - Pulmonary oedema [Recovered/Resolved]
  - Anaphylactic shock [Recovered/Resolved]
  - Sinus tachycardia [Recovered/Resolved]
  - Hypotension [Recovered/Resolved]
  - Respiratory acidosis [Recovered/Resolved]
  - Alveolitis allergic [Recovered/Resolved]
  - Procalcitonin increased [Recovered/Resolved]
